FAERS Safety Report 12116372 (Version 1)
Quarter: 2016Q1

REPORT INFORMATION
  Report Type: Spontaneous
  Country: ES (occurrence: ES)
  Receive Date: 20160225
  Receipt Date: 20160225
  Transmission Date: 20160526
  Serious: Yes (Other)
  Sender: FDA-Public Use
  Company Number: ES-JNJFOC-20160216635

PATIENT

DRUGS (1)
  1. INFLIXIMAB, RECOMBINANT [Suspect]
     Active Substance: INFLIXIMAB
     Indication: RHEUMATOID ARTHRITIS
     Dosage: INITIATED BETWEEN 01-JAN-2007 TO 31-DEC-2012
     Route: 042

REACTIONS (10)
  - Neuropathy peripheral [Unknown]
  - Dermatitis allergic [Unknown]
  - Infusion related reaction [Unknown]
  - Influenza like illness [Unknown]
  - Cardiovascular disorder [Unknown]
  - Abdominal pain [Unknown]
  - Hypertriglyceridaemia [Unknown]
  - Renal failure [Unknown]
  - Infection [Unknown]
  - Pulmonary mass [Unknown]
